FAERS Safety Report 26190860 (Version 1)
Quarter: 2025Q4

REPORT INFORMATION
  Report Type: Spontaneous
  Country: KR (occurrence: KR)
  Receive Date: 20251223
  Receipt Date: 20251223
  Transmission Date: 20260117
  Serious: Yes (Other)
  Sender: Kenvue
  Company Number: KR-KENVUE-20251207543

PATIENT
  Age: 5 Decade

DRUGS (1)
  1. TYLENOL 8HR [Suspect]
     Active Substance: ACETAMINOPHEN
     Indication: Evidence based treatment
     Dosage: 1 DOSAGE FORM, 0.33 TIME A DAY
     Route: 065

REACTIONS (3)
  - Dyspnoea [Recovered/Resolved]
  - Wheezing [Recovered/Resolved]
  - Angioedema [Recovered/Resolved]
